APPROVED DRUG PRODUCT: VARUBI
Active Ingredient: ROLAPITANT HYDROCHLORIDE
Strength: EQ 90MG BASE
Dosage Form/Route: TABLET;ORAL
Application: N206500 | Product #001
Applicant: TERSERA THERAPEUTICS LLC
Approved: Sep 1, 2015 | RLD: Yes | RS: Yes | Type: RX

PATENTS:
Patent 8470842 | Expires: Jan 18, 2029
Patent 8404702 | Expires: Apr 4, 2027
Patent 7981905 | Expires: Apr 4, 2027
Patent 7049320 | Expires: Aug 19, 2028
Patent 7563801 | Expires: Apr 4, 2027
Patent 8361500 | Expires: Oct 9, 2029
Patent 8178550 | Expires: Apr 4, 2027